FAERS Safety Report 6593674-0 (Version None)
Quarter: 2010Q1

REPORT INFORMATION
  Report Type: 
  Country: None (occurrence: None)
  Receive Date: 20100222
  Receipt Date: 20091028
  Transmission Date: 20100710
  Serious: No
  Sender: FDA-Public Use
  Company Number: US-BRISTOL-MYERS SQUIBB COMPANY-14834329

PATIENT
  Age: 55 Year
  Sex: Female
  Weight: 69 kg

DRUGS (13)
  1. ORENCIA [Suspect]
     Indication: RHEUMATOID ARTHRITIS
  2. IMURAN [Concomitant]
  3. PLAQUENIL [Concomitant]
  4. CALCIUM [Concomitant]
  5. VITAMIN B COMPLEX CAP [Concomitant]
  6. CENTRUM SILVER [Concomitant]
  7. SLOW FE [Concomitant]
  8. PREVACID [Concomitant]
  9. HYDROCHLOROTHIAZIDE [Concomitant]
  10. TRAZODONE HCL [Concomitant]
  11. FOSAMAX [Concomitant]
  12. TYLENOL (CAPLET) [Concomitant]
  13. HYDROCODONE [Concomitant]

REACTIONS (1)
  - ALOPECIA [None]
